FAERS Safety Report 10414751 (Version 1)
Quarter: 2014Q2

REPORT INFORMATION
  Report Type: Spontaneous
  Country: US (occurrence: None)
  Receive Date: 20140604
  Receipt Date: 20140604
  Transmission Date: 20141212
  Serious: No
  Sender: FDA-Public Use
  Company Number: 163-POMAL-14035255

PATIENT
  Age: 53 Year
  Sex: Male

DRUGS (4)
  1. POMALYST (POMALIDOMIDE) (CAPSULES) [Suspect]
     Indication: PLASMA CELL MYELOMA
     Route: 048
     Dates: start: 20131219
  2. BACTRIM DS [Concomitant]
  3. CLINDAMYCIN HCL [Concomitant]
  4. EFFEXOR XR (VENLAFAXINE HYDROCHLORIDE) (75 MILLIGRAM, CAPSULE) (VENLAFAXINE HYDROCHLORIDE) [Concomitant]

REACTIONS (2)
  - Influenza [None]
  - Pneumonia [None]
